FAERS Safety Report 10153370 (Version 2)
Quarter: 2014Q2

REPORT INFORMATION
  Report Type: Report from Study
  Country: AU (occurrence: AU)
  Receive Date: 20140505
  Receipt Date: 20140505
  Transmission Date: 20141212
  Serious: Yes (Death, Life-Threatening, Other)
  Sender: FDA-Public Use
  Company Number: AU-INCYTE CORPORATION-2014IN000923

PATIENT
  Age: 72 Year
  Sex: Male

DRUGS (2)
  1. JAKAVI [Suspect]
     Indication: MYELOFIBROSIS
     Dosage: UNK UNK, UNK
     Route: 065
     Dates: end: 20140325
  2. WARFARIN [Concomitant]

REACTIONS (4)
  - Haemorrhage intracranial [Fatal]
  - Fatigue [Unknown]
  - Asthenia [Unknown]
  - Fall [Unknown]
